FAERS Safety Report 8790909 (Version 2)
Quarter: 2013Q3

REPORT INFORMATION
  Report Type: Spontaneous
  Country: US (occurrence: None)
  Receive Date: 20120907
  Receipt Date: 20130815
  Transmission Date: 20140515
  Serious: Yes (Other)
  Sender: FDA-Public Use
  Company Number: ADR-2012-00864

PATIENT
  Sex: Female

DRUGS (3)
  1. BACLOFEN [Suspect]
     Indication: MUSCLE SPASTICITY
     Dosage: SEE IMAGE
  2. BACLOFEN [Suspect]
     Indication: HEAD INJURY
     Dosage: SEE IMAGE
  3. BACLOFEN [Suspect]
     Indication: BRAIN INJURY
     Dosage: SEE IMAGE

REACTIONS (9)
  - Paraesthesia [None]
  - Tension headache [None]
  - Nervousness [None]
  - Anxiety [None]
  - Lethargy [None]
  - Dizziness [None]
  - Paraesthesia [None]
  - Tension headache [None]
  - Restlessness [None]
